FAERS Safety Report 24439796 (Version 2)
Quarter: 2025Q4

REPORT INFORMATION
  Report Type: Spontaneous
  Country: GB (occurrence: GB)
  Receive Date: 20241015
  Receipt Date: 20251015
  Transmission Date: 20260118
  Serious: Yes (Other)
  Sender: SANDOZ
  Company Number: None

PATIENT
  Age: 34 Year
  Sex: Male

DRUGS (1)
  1. ZOLEDRONIC ACID [Suspect]
     Active Substance: ZOLEDRONIC ACID
     Indication: Progressive diaphyseal dysplasia
     Dosage: UNKNOWN
     Route: 065
     Dates: start: 2020

REACTIONS (2)
  - C-telopeptide increased [Unknown]
  - Bone pain [Recovered/Resolved]
